FAERS Safety Report 19371209 (Version 2)
Quarter: 2021Q3

REPORT INFORMATION
  Report Type: Spontaneous
  Country: IT (occurrence: IT)
  Receive Date: 20210604
  Receipt Date: 20210723
  Transmission Date: 20211014
  Serious: Yes (Other)
  Sender: FDA-Public Use
  Company Number: IT-SUN PHARMACEUTICAL INDUSTRIES LTD-2021RR-299380

PATIENT
  Age: 62 Year
  Sex: Female

DRUGS (1)
  1. OXALIPLATINO SUN 5 MG/ML, CONCENTRATO PER SOLUZIONE PER INFUSIONE [Suspect]
     Active Substance: OXALIPLATIN
     Indication: COLON NEOPLASM
     Dosage: 180 MILLIGRAM, CYCLICAL
     Route: 042
     Dates: start: 20210506, end: 20210506

REACTIONS (4)
  - Feeling cold [Recovered/Resolved]
  - Asthenia [Recovered/Resolved]
  - Product quality issue [Unknown]
  - Laryngospasm [Recovered/Resolved]

NARRATIVE: CASE EVENT DATE: 20210506
